FAERS Safety Report 20496294 (Version 3)
Quarter: 2022Q4

REPORT INFORMATION
  Report Type: Report from Study
  Country: CA (occurrence: CA)
  Receive Date: 20220221
  Receipt Date: 20221129
  Transmission Date: 20230113
  Serious: Yes (Other)
  Sender: FDA-Public Use
  Company Number: CA-ABBVIE-22K-028-4240874-00

PATIENT
  Age: 64 Year
  Sex: Female

DRUGS (2)
  1. RINVOQ [Suspect]
     Active Substance: UPADACITINIB
     Indication: Rheumatoid arthritis
     Dosage: STRENGTH 15 MILLIGRAM
     Route: 048
     Dates: start: 20200708, end: 20220112
  2. RINVOQ [Suspect]
     Active Substance: UPADACITINIB
     Indication: Rheumatoid arthritis
     Dosage: STRENGTH 15 MILLIGRAM
     Route: 048
     Dates: end: 202204

REACTIONS (14)
  - Knee arthroplasty [Unknown]
  - Urinary tract infection [Unknown]
  - Surgical failure [Unknown]
  - Nephrolithiasis [Recovered/Resolved]
  - Osteoarthritis [Unknown]
  - Blood urine present [Unknown]
  - Rheumatoid arthritis [Unknown]
  - Arthralgia [Unknown]
  - Fall [Unknown]
  - Wrist fracture [Unknown]
  - Calculus bladder [Unknown]
  - Haematochezia [Unknown]
  - Hydronephrosis [Unknown]
  - Cystitis [Unknown]

NARRATIVE: CASE EVENT DATE: 20201001
